FAERS Safety Report 10905223 (Version 1)
Quarter: 2015Q1

REPORT INFORMATION
  Report Type: Report from Study
  Country: GB (occurrence: GB)
  Receive Date: 20150311
  Receipt Date: 20150311
  Transmission Date: 20150721
  Serious: Yes (Hospitalization)
  Sender: FDA-Public Use
  Company Number: GB-ABBVIE-15K-167-1356943-00

PATIENT
  Sex: Female

DRUGS (1)
  1. HUMIRA [Suspect]
     Active Substance: ADALIMUMAB
     Indication: PRODUCT USED FOR UNKNOWN INDICATION
     Route: 065

REACTIONS (6)
  - Sinus congestion [Recovering/Resolving]
  - Hypertension [Recovered/Resolved]
  - Paraesthesia oral [Not Recovered/Not Resolved]
  - Swelling face [Recovering/Resolving]
  - Paraesthesia [Not Recovered/Not Resolved]
  - Sinusitis [Recovering/Resolving]
